FAERS Safety Report 6865997-9 (Version None)
Quarter: 2010Q3

REPORT INFORMATION
  Report Type: 
  Country: None (occurrence: None)
  Receive Date: 20100719
  Receipt Date: 20100701
  Transmission Date: 20110219
  Serious: Yes (Hospitalization)
  Sender: FDA-Public Use
  Company Number: RB-05386-2010

PATIENT
  Sex: Male

DRUGS (4)
  1. SUBUTEX [Suspect]
     Indication: INTENTIONAL DRUG MISUSE
     Dosage: (DOSING DETAILS UNKNOWN UNKNOWN)
     Dates: end: 20091104
  2. CANNABIS (CANNABIS) [Suspect]
     Indication: PRODUCT USED FOR UNKNOWN INDICATION
  3. ALCOHOL (ALCOHOL) [Suspect]
     Indication: PRODUCT USED FOR UNKNOWN INDICATION
  4. COCAINE (COCAINE) [Suspect]
     Indication: PRODUCT USED FOR UNKNOWN INDICATION

REACTIONS (7)
  - AGITATION [None]
  - DRUG ABUSE [None]
  - DRUG SCREEN POSITIVE [None]
  - DRUG TOXICITY [None]
  - INTENTIONAL DRUG MISUSE [None]
  - OFF LABEL USE [None]
  - SUICIDAL IDEATION [None]
